FAERS Safety Report 7865274-3 (Version None)
Quarter: 2011Q4

REPORT INFORMATION
  Report Type: 
  Country: None (occurrence: None)
  Receive Date: 20111028
  Receipt Date: 20101115
  Transmission Date: 20120403
  Serious: No
  Sender: FDA-Public Use
  Company Number: US-GLAXOSMITHKLINE-A0892542A

PATIENT
  Age: 50 Year
  Sex: Female

DRUGS (6)
  1. TOPIRAMATE [Concomitant]
  2. BUPROPION HCL [Concomitant]
     Route: 048
  3. PREMARIN [Concomitant]
  4. ADVAIR DISKUS 100/50 [Suspect]
     Indication: ASTHMA
     Dosage: 1PUFF TWICE PER DAY
     Route: 055
     Dates: start: 20040101
  5. TIZANIDINE HCL [Concomitant]
  6. TRAZODONE HYDROCHLORIDE [Concomitant]

REACTIONS (4)
  - THROAT IRRITATION [None]
  - DYSGEUSIA [None]
  - RETCHING [None]
  - PRODUCT QUALITY ISSUE [None]
